FAERS Safety Report 5728187-9 (Version None)
Quarter: 2008Q2

REPORT INFORMATION
  Report Type: 
  Country: None (occurrence: None)
  Receive Date: 20080501
  Receipt Date: 20080424
  Transmission Date: 20081010
  Serious: Yes (Other)
  Sender: FDA-Public Use
  Company Number: 2008010441

PATIENT
  Age: 71 Year
  Sex: Female
  Weight: 67.6 kg

DRUGS (7)
  1. ZYRTEC [Suspect]
     Indication: HYPERSENSITIVITY
     Dosage: 1 TABLET, 1X DAILY (10 MG,1 IN 1 D), ORAL
     Route: 048
     Dates: start: 20080410
  2. ALLEGRA [Concomitant]
  3. ZOCOR [Concomitant]
  4. UNIVASC [Concomitant]
  5. HYDROCHLOROTHIAZIDE [Concomitant]
  6. NEXIUM [Concomitant]
  7. ACTONEL [Concomitant]

REACTIONS (1)
  - CARDIAC MURMUR [None]
